FAERS Safety Report 12437438 (Version 1)
Quarter: 2016Q2

REPORT INFORMATION
  Report Type: Spontaneous
  Country: AU (occurrence: AU)
  Receive Date: 20160606
  Receipt Date: 20160606
  Transmission Date: 20160815
  Serious: Yes (Other)
  Sender: FDA-Public Use
  Company Number: AU-009507513-1502AUS001044

PATIENT
  Age: 5 Month
  Sex: Male

DRUGS (3)
  1. BRIDION [Suspect]
     Active Substance: SUGAMMADEX
     Indication: OVERDOSE
     Dosage: UNK
  2. BRIDION [Suspect]
     Active Substance: SUGAMMADEX
     Dosage: UNK
  3. ESMERON [Suspect]
     Active Substance: ROCURONIUM BROMIDE
     Dosage: 2 ML/KG, UNK

REACTIONS (3)
  - Bradycardia [Recovered/Resolved]
  - Drug effect delayed [Recovered/Resolved]
  - Off label use [Unknown]
